FAERS Safety Report 19823450 (Version 1)
Quarter: 2021Q3

REPORT INFORMATION
  Report Type: Spontaneous
  Country: US (occurrence: US)
  Receive Date: 20210913
  Receipt Date: 20210913
  Transmission Date: 20211014
  Serious: No
  Sender: FDA-Public Use
  Company Number: US-ASTRAZENECA-2021A719642

PATIENT
  Sex: Male

DRUGS (1)
  1. PULMICORT FLEXHALER [Suspect]
     Active Substance: BUDESONIDE
     Indication: COVID-19
     Dosage: 180.0UG UNKNOWN
     Route: 055
     Dates: start: 20210820

REACTIONS (4)
  - Condition aggravated [Unknown]
  - Device malfunction [Unknown]
  - Intentional device misuse [Unknown]
  - Off label use [Unknown]
